FAERS Safety Report 4778011-6 (Version None)
Quarter: 2005Q3

REPORT INFORMATION
  Report Type: 
  Country: None (occurrence: None)
  Receive Date: 20050923
  Receipt Date: 20050912
  Transmission Date: 20060218
  Serious: Yes (Hospitalization)
  Sender: FDA-Public Use
  Company Number: MK200509-0154-1

PATIENT
  Age: 39 Year
  Sex: Female

DRUGS (11)
  1. FLUOXETINE [Suspect]
     Indication: DEPRESSION
  2. LINEZOLID [Suspect]
     Indication: STAPHYLOCOCCAL INFECTION
     Dosage: TWO DOSES
  3. DISULFIRAM [Concomitant]
  4. FLUOXETINE [Concomitant]
  5. BUSPIRONE HCL [Concomitant]
  6. CYCLOBENZAPRINE HCL [Concomitant]
  7. FOLATE [Concomitant]
  8. LORAZEPAM [Concomitant]
  9. HALOPERIDOL [Concomitant]
  10. VANCOMYCIN [Concomitant]
  11. LINEZOLID [Concomitant]

REACTIONS (21)
  - AGITATION [None]
  - ALCOHOL WITHDRAWAL SYNDROME [None]
  - ANTICHOLINERGIC SYNDROME [None]
  - AUTONOMIC NERVOUS SYSTEM IMBALANCE [None]
  - BLOOD PRESSURE INCREASED [None]
  - CLONUS [None]
  - DRUG INTERACTION [None]
  - HEART RATE INCREASED [None]
  - HYPERHIDROSIS [None]
  - LETHARGY [None]
  - LOSS OF CONSCIOUSNESS [None]
  - MYDRIASIS [None]
  - MYOCLONUS [None]
  - OVERDOSE [None]
  - RESPIRATORY DEPRESSION [None]
  - SALIVARY HYPERSECRETION [None]
  - SEDATION [None]
  - SEROTONIN SYNDROME [None]
  - STAPHYLOCOCCAL INFECTION [None]
  - TACHYCARDIA [None]
  - TREMOR [None]
